FAERS Safety Report 4277907-1 (Version None)
Quarter: 2004Q1

REPORT INFORMATION
  Report Type: 
  Country: None (occurrence: None)
  Receive Date: 20040123
  Receipt Date: 20040113
  Transmission Date: 20041129
  Serious: Yes (Other)
  Sender: FDA-Public Use
  Company Number: CA-GLAXOSMITHKLINE-A0492921A

PATIENT
  Age: 38 Year
  Sex: Female
  Weight: 62.7 kg

DRUGS (4)
  1. MALARONE [Suspect]
     Indication: MALARIA PROPHYLAXIS
     Route: 048
     Dates: start: 20040102, end: 20040103
  2. MULTIVITAMIN [Concomitant]
     Indication: CROHN'S DISEASE
  3. HERBAL SUPPLEMENT [Concomitant]
     Indication: CROHN'S DISEASE
  4. GINKGO [Concomitant]

REACTIONS (6)
  - COLITIS [None]
  - CONDITION AGGRAVATED [None]
  - CROHN'S DISEASE [None]
  - DIARRHOEA [None]
  - HAEMATOCHEZIA [None]
  - PYREXIA [None]
